FAERS Safety Report 23769980 (Version 1)
Quarter: 2024Q2

REPORT INFORMATION
  Report Type: Spontaneous
  Country: US (occurrence: None)
  Receive Date: 20240421
  Receipt Date: 20240421
  Transmission Date: 20240717
  Serious: No
  Sender: FDA-Public Use
  Company Number: None

PATIENT
  Age: 48 Year
  Sex: Female

DRUGS (1)
  1. WARFARIN SODIUM [Suspect]
     Active Substance: WARFARIN SODIUM
     Indication: Deep vein thrombosis
     Dates: start: 20230322

REACTIONS (7)
  - Gastrointestinal haemorrhage [None]
  - Faeces discoloured [None]
  - Melaena [None]
  - Haematemesis [None]
  - Oropharyngeal pain [None]
  - Diarrhoea [None]
  - International normalised ratio increased [None]

NARRATIVE: CASE EVENT DATE: 20230607
